FAERS Safety Report 5484507-4 (Version None)
Quarter: 2007Q4

REPORT INFORMATION
  Report Type: 
  Country: None (occurrence: None)
  Receive Date: 20071010
  Receipt Date: 20071001
  Transmission Date: 20080405
  Serious: Yes (Other)
  Sender: FDA-Public Use
  Company Number: 163-21880-07010160

PATIENT

DRUGS (1)
  1. REVLIMID [Suspect]
     Indication: EPENDYMOMA
     Dosage: 68 MG/M2, DAILY FOR 21 DAYS, ORAL
     Route: 048
     Dates: start: 20060517

REACTIONS (20)
  - ABDOMINAL PAIN [None]
  - ASTHENIA [None]
  - BACTERIAL INFECTION [None]
  - CONSTIPATION [None]
  - DERMATITIS ACNEIFORM [None]
  - DIARRHOEA [None]
  - FEBRILE NEUTROPENIA [None]
  - HAEMOGLOBIN ABNORMAL [None]
  - HAIR GROWTH ABNORMAL [None]
  - HEADACHE [None]
  - HYPERGLYCAEMIA [None]
  - HYPOALBUMINAEMIA [None]
  - HYPOCALCAEMIA [None]
  - HYPOPHOSPHATAEMIA [None]
  - LETHARGY [None]
  - MALAISE [None]
  - MYOSITIS [None]
  - NAUSEA [None]
  - PLATELET DISORDER [None]
  - WHITE BLOOD CELL DISORDER [None]
